FAERS Safety Report 8043692-0 (Version None)
Quarter: 2012Q1

REPORT INFORMATION
  Report Type: 
  Country: None (occurrence: None)
  Receive Date: 20120112
  Receipt Date: 20120110
  Transmission Date: 20120608
  Serious: Yes (Life-Threatening, Hospitalization)
  Sender: FDA-Public Use
  Company Number: US-ROCHE-1029358

PATIENT
  Sex: Female

DRUGS (2)
  1. LORTAB [Suspect]
     Indication: PAIN
  2. KLONOPIN [Suspect]
     Indication: ANXIETY
     Route: 048

REACTIONS (5)
  - VOMITING [None]
  - HYPERSOMNIA [None]
  - MEDICATION ERROR [None]
  - SUICIDAL IDEATION [None]
  - LACERATION [None]
